APPROVED DRUG PRODUCT: KERLEDEX
Active Ingredient: BETAXOLOL HYDROCHLORIDE; CHLORTHALIDONE
Strength: 10MG;12.5MG
Dosage Form/Route: TABLET;ORAL
Application: N019807 | Product #002
Applicant: SANOFI AVENTIS US LLC
Approved: Oct 30, 1992 | RLD: No | RS: No | Type: DISCN